FAERS Safety Report 25711717 (Version 1)
Quarter: 2025Q3

REPORT INFORMATION
  Report Type: Spontaneous
  Country: US (occurrence: US)
  Receive Date: 20250821
  Receipt Date: 20250821
  Transmission Date: 20251020
  Serious: No
  Sender: IPSEN BIOPHARMACEUTICALS, INC.
  Company Number: US-IPSEN Group, Research and Development-2025-20345

PATIENT
  Age: 36 Year
  Sex: Male
  Weight: 83 kg

DRUGS (26)
  1. TAZVERIK [Suspect]
     Active Substance: TAZEMETOSTAT HYDROBROMIDE
     Indication: Malignant connective tissue neoplasm
     Dates: start: 202503
  2. ADVAIR HFA [Concomitant]
     Active Substance: FLUTICASONE PROPIONATE\SALMETEROL XINAFOATE
  3. ALBUTEROL [Concomitant]
     Active Substance: ALBUTEROL
  4. ANISE OIL [Concomitant]
     Active Substance: ANISE OIL
  5. DIETARY SUPPLEMENT\HERBALS\INDIAN FRANKINCENSE [Concomitant]
     Active Substance: DIETARY SUPPLEMENT\HERBALS\INDIAN FRANKINCENSE
  6. BROMELAINS [Concomitant]
     Active Substance: BROMELAINS
  7. CASCARA SAGRADA [Concomitant]
     Active Substance: FRANGULA PURSHIANA BARK
  8. CHARCOAL ACTIVATED [Concomitant]
     Active Substance: ACTIVATED CHARCOAL
  9. Dandelion Root [Concomitant]
  10. HERBALS [Concomitant]
     Active Substance: HERBALS
  11. VITAMIN D3 [Concomitant]
     Active Substance: CHOLECALCIFEROL
  12. GINKGO [Concomitant]
     Active Substance: GINKGO
  13. HERBALS\HOMEOPATHICS\GOLDENSEAL [Concomitant]
     Active Substance: HERBALS\HOMEOPATHICS\GOLDENSEAL
  14. Immunoglobulin [Concomitant]
  15. IVERMECTIN [Concomitant]
     Active Substance: IVERMECTIN
  16. KRILL OIL [Concomitant]
     Active Substance: DIETARY SUPPLEMENT\KRILL OIL
  17. LICORICE [Concomitant]
     Active Substance: LICORICE
  18. MAGNESIUM OXIDE [Concomitant]
     Active Substance: MAGNESIUM OXIDE
  19. MEBENDAZOLE [Concomitant]
     Active Substance: MEBENDAZOLE
  20. ACETYLCYSTEINE [Concomitant]
     Active Substance: ACETYLCYSTEINE
  21. NASONEX [Concomitant]
     Active Substance: MOMETASONE FUROATE
  22. URTICA DIOICA LEAF [Concomitant]
     Active Substance: URTICA DIOICA LEAF
  23. QUERCETIN [Concomitant]
     Active Substance: QUERCETIN
  24. HERBALS\TURMERIC [Concomitant]
     Active Substance: HERBALS\TURMERIC
  25. PORBIOTIC [Concomitant]
  26. VITAMIN C [Concomitant]
     Active Substance: ASCORBIC ACID

REACTIONS (3)
  - Gastric pH decreased [Not Recovered/Not Resolved]
  - Abdominal distension [Not Recovered/Not Resolved]
  - Anxiety [Not Recovered/Not Resolved]
